FAERS Safety Report 9340734 (Version 1)
Quarter: 2013Q2

REPORT INFORMATION
  Report Type: Spontaneous
  Country: PH (occurrence: PH)
  Receive Date: 20130610
  Receipt Date: 20130610
  Transmission Date: 20140414
  Serious: Yes (Death, Hospitalization)
  Sender: FDA-Public Use
  Company Number: PH-BAXTER-2013BAX021125

PATIENT
  Sex: Male

DRUGS (2)
  1. DIANEAL PD2 WITH 1.5% DEXTROSE [Suspect]
     Indication: PERITONEAL DIALYSIS
     Route: 033
     Dates: start: 20130526, end: 20130602
  2. DIANEAL PD2 WITH 4.25% DEXTROSE [Suspect]
     Indication: PERITONEAL DIALYSIS
     Route: 033
     Dates: start: 20130526

REACTIONS (11)
  - Cardiogenic shock [Fatal]
  - Dengue fever [Fatal]
  - Multi-organ failure [Fatal]
  - Renal failure acute [Fatal]
  - Encephalopathy [Fatal]
  - Ischaemic hepatitis [Fatal]
  - Pneumonia [Fatal]
  - Acute respiratory failure [Fatal]
  - Electrolyte imbalance [Fatal]
  - Hypocalcaemia [Fatal]
  - Pyrexia [Unknown]
